FAERS Safety Report 15533671 (Version 1)
Quarter: 2018Q4

REPORT INFORMATION
  Report Type: Spontaneous
  Country: FR (occurrence: FR)
  Receive Date: 20181019
  Receipt Date: 20181019
  Transmission Date: 20190205
  Serious: Yes (Hospitalization, Other)
  Sender: FDA-Public Use
  Company Number: FR-PFIZER INC-2018420271

PATIENT
  Age: 79 Year
  Sex: Male
  Weight: 86 kg

DRUGS (3)
  1. DALACINE [Suspect]
     Active Substance: CLINDAMYCIN
     Indication: DEVICE RELATED INFECTION
     Dosage: 1800 MG 1X/DAY
     Route: 048
     Dates: start: 20171219, end: 20180207
  2. BACTRIM [Suspect]
     Active Substance: SULFAMETHOXAZOLE\TRIMETHOPRIM
     Indication: DEVICE RELATED INFECTION
     Dosage: 2400 MG, 1X/DAY
     Route: 048
     Dates: start: 20171219, end: 20180207
  3. EXFORGE [Concomitant]
     Active Substance: AMLODIPINE BESYLATE\VALSARTAN
     Indication: HYPERTENSION
     Dosage: [AMLODIPINE 5 MG]/[VALSARTAN 80 MG]; DAILY
     Route: 048

REACTIONS (4)
  - Product use issue [Unknown]
  - Toxic skin eruption [Recovered/Resolved]
  - Acute kidney injury [Recovered/Resolved]
  - Hyperkalaemia [Recovered/Resolved]

NARRATIVE: CASE EVENT DATE: 20171219
